FAERS Safety Report 9668963 (Version 1)
Quarter: 2013Q4

REPORT INFORMATION
  Report Type: Spontaneous
  Country: SE (occurrence: SE)
  Receive Date: 20131105
  Receipt Date: 20131105
  Transmission Date: 20140711
  Serious: Yes (Other)
  Sender: FDA-Public Use
  Company Number: SE-ASTRAZENECA-2013SE79216

PATIENT
  Age: 52 Year
  Sex: Male

DRUGS (2)
  1. OMEPRAZOL [Suspect]
     Route: 048
  2. NOVALUCOL [Concomitant]

REACTIONS (1)
  - Transient ischaemic attack [Unknown]
